FAERS Safety Report 10065422 (Version 2)
Quarter: 2014Q2

REPORT INFORMATION
  Report Type: Spontaneous
  Country: JP (occurrence: JP)
  Receive Date: 20140408
  Receipt Date: 20140425
  Transmission Date: 20141212
  Serious: No
  Sender: FDA-Public Use
  Company Number: JP-GLAXOSMITHKLINE-B0982933A

PATIENT
  Age: 5 Decade
  Sex: Female

DRUGS (5)
  1. LAMICTAL [Suspect]
     Indication: BIPOLAR DISORDER
     Dosage: 100MG PER DAY
     Route: 048
  2. LAMICTAL [Suspect]
     Indication: BIPOLAR DISORDER
     Dosage: 200MG PER DAY
     Route: 048
  3. HYPNOTICS [Concomitant]
     Route: 065
  4. SEDATIVES [Concomitant]
  5. ANTI-ANXIETY MED- NAME UNKNOWN [Concomitant]

REACTIONS (2)
  - Nausea [Recovered/Resolved]
  - Hypophagia [Unknown]
